FAERS Safety Report 6758734-X (Version None)
Quarter: 2010Q2

REPORT INFORMATION
  Report Type: 
  Country: None (occurrence: None)
  Receive Date: 20100607
  Receipt Date: 20100527
  Transmission Date: 20101027
  Serious: Yes (Other)
  Sender: FDA-Public Use
  Company Number: JP-MERCK-1006USA00325

PATIENT
  Sex: Female

DRUGS (4)
  1. ZETIA [Suspect]
     Indication: HYPERCHOLESTEROLAEMIA
     Route: 048
     Dates: start: 20070926, end: 20100430
  2. AMOXICILLIN [Concomitant]
     Indication: HELICOBACTER INFECTION
     Route: 065
     Dates: start: 20100324
  3. TAKEPRON [Suspect]
     Indication: HELICOBACTER INFECTION
     Route: 065
     Dates: start: 20100324
  4. KLARICID [Suspect]
     Indication: HELICOBACTER INFECTION
     Route: 048
     Dates: start: 20100324

REACTIONS (3)
  - BLOOD CREATINE PHOSPHOKINASE INCREASED [None]
  - MALAISE [None]
  - ORAL DISCOMFORT [None]
